FAERS Safety Report 9078764 (Version 1)
Quarter: 2013Q1

REPORT INFORMATION
  Report Type: Report from Study
  Country: US (occurrence: US)
  Receive Date: 20130130
  Receipt Date: 20130130
  Transmission Date: 20140127
  Serious: No
  Sender: FDA-Public Use
  Company Number: US-ABBOTT-12P-163-0976864-00

PATIENT
  Age: 35 None
  Sex: Female
  Weight: 93.07 kg

DRUGS (4)
  1. HUMIRA [Suspect]
     Indication: STILL^S DISEASE ADULT ONSET
     Route: 058
     Dates: start: 201206, end: 201208
  2. HUMIRA [Suspect]
     Dates: start: 20120827
  3. METHOTREXATE [Suspect]
     Indication: STILL^S DISEASE ADULT ONSET
     Route: 048
     Dates: end: 20120816
  4. PREDNISONE [Concomitant]
     Indication: PRODUCT USED FOR UNKNOWN INDICATION
     Route: 048

REACTIONS (4)
  - Off label use [Not Recovered/Not Resolved]
  - Liver disorder [Recovering/Resolving]
  - Arthralgia [Recovering/Resolving]
  - Pyrexia [Recovering/Resolving]
